FAERS Safety Report 17618965 (Version 1)
Quarter: 2020Q2

REPORT INFORMATION
  Report Type: Report from Study
  Country: US (occurrence: US)
  Receive Date: 20200403
  Receipt Date: 20200403
  Transmission Date: 20200713
  Serious: Yes (Death)
  Sender: FDA-Public Use
  Company Number: US-EMD SERONO-9155236

PATIENT
  Age: 77 Year
  Sex: Male

DRUGS (1)
  1. SEROSTIM [Suspect]
     Active Substance: SOMATROPIN
     Indication: CACHEXIA
     Dosage: 7 VIAL PACK
     Route: 058
     Dates: start: 20190702

REACTIONS (1)
  - Death [Fatal]

NARRATIVE: CASE EVENT DATE: 20200122
